FAERS Safety Report 11908606 (Version 1)
Quarter: 2016Q1

REPORT INFORMATION
  Report Type: Spontaneous
  Country: US (occurrence: US)
  Receive Date: 20160111
  Receipt Date: 20160111
  Transmission Date: 20160526
  Serious: No
  Sender: FDA-Public Use
  Company Number: US-APOTEX-2014AP006365

PATIENT
  Sex: Female

DRUGS (11)
  1. SERTRALINE HYDROCHLORIDE. [Suspect]
     Active Substance: SERTRALINE HYDROCHLORIDE
     Indication: PANIC DISORDER
     Dosage: 25 MG, UNKNOWN
     Route: 065
  2. NORTRIPTYLINE [Suspect]
     Active Substance: NORTRIPTYLINE
     Dosage: 40 MG, UNKNOWN
     Route: 065
     Dates: start: 20120303
  3. NEFAZODONE [Concomitant]
     Active Substance: NEFAZODONE
     Indication: PANIC DISORDER
     Dosage: 75 MG, UNKNOWN
     Route: 065
  4. CITALOPRAM [Suspect]
     Active Substance: CITALOPRAM HYDROBROMIDE
     Indication: PANIC DISORDER
     Dosage: UNK
     Route: 065
  5. BUPROPION HYDROCHLORIDE. [Suspect]
     Active Substance: BUPROPION HYDROCHLORIDE
     Indication: ANXIETY
     Dosage: 200 MG, UNKNOWN
     Route: 065
  6. NORTRIPTYLINE [Suspect]
     Active Substance: NORTRIPTYLINE
     Dosage: 20 MG, UNKNOWN
     Route: 065
     Dates: start: 20031111
  7. NORTRIPTYLINE [Suspect]
     Active Substance: NORTRIPTYLINE
     Dosage: 50 MG, UNK
     Route: 065
     Dates: start: 20120317
  8. NORTRIPTYLINE [Suspect]
     Active Substance: NORTRIPTYLINE
     Dosage: UNK
  9. LORAZEPAM. [Concomitant]
     Active Substance: LORAZEPAM
     Indication: ANXIETY
     Dosage: UNK, PRN
     Route: 065
  10. NORTRIPTYLINE [Suspect]
     Active Substance: NORTRIPTYLINE
     Indication: PANIC DISORDER
     Dosage: 10 MG, UNKNOWN
     Route: 065
     Dates: start: 20100321
  11. LORAZEPAM. [Concomitant]
     Active Substance: LORAZEPAM
     Dosage: INCREASED PRN (0.5-1 MG QD)
     Route: 065

REACTIONS (8)
  - Merycism [Unknown]
  - Withdrawal syndrome [Unknown]
  - Chills [Unknown]
  - Nausea [Unknown]
  - Dry mouth [Unknown]
  - Dizziness [Unknown]
  - Vomiting [Unknown]
  - Dyspnoea [Unknown]
